FAERS Safety Report 14688994 (Version 2)
Quarter: 2018Q2

REPORT INFORMATION
  Report Type: Report from Study
  Country: CA (occurrence: CA)
  Receive Date: 20180328
  Receipt Date: 20180416
  Transmission Date: 20180711
  Serious: Yes (Hospitalization, Other)
  Sender: FDA-Public Use
  Company Number: CA-GLAXOSMITHKLINE-CA2018GSK049964

PATIENT
  Age: 36 Year
  Sex: Female

DRUGS (1)
  1. SALBUTAMOL SULPHATE [Suspect]
     Active Substance: ALBUTEROL SULFATE
     Indication: ASTHMA
     Dosage: UNK, PRN

REACTIONS (19)
  - Osteoporosis [Unknown]
  - Pain [Unknown]
  - Lung infection [Unknown]
  - Dyspnoea [Unknown]
  - Microbiology test abnormal [Unknown]
  - Chest pain [Unknown]
  - Cough [Unknown]
  - Central venous catheterisation [Unknown]
  - Sinus operation [Unknown]
  - Intestinal perforation [Unknown]
  - Fallopian tube operation [Unknown]
  - Cholelithiasis [Unknown]
  - Diabetes mellitus [Unknown]
  - Lower respiratory tract infection [Unknown]
  - Paranasal sinus polypectomy [Unknown]
  - Infection [Unknown]
  - Adrenal insufficiency [Unknown]
  - Sinusitis aspergillus [Unknown]
  - Sinusitis [Unknown]

NARRATIVE: CASE EVENT DATE: 201708
